FAERS Safety Report 7137721-6 (Version None)
Quarter: 2010Q4

REPORT INFORMATION
  Report Type: 
  Country: None (occurrence: None)
  Receive Date: 20101206
  Receipt Date: 20101123
  Transmission Date: 20110411
  Serious: Yes (Hospitalization)
  Sender: FDA-Public Use
  Company Number: PHHY2010NL79760

PATIENT
  Sex: Male

DRUGS (3)
  1. ZOMETA [Suspect]
     Indication: HYPERCALCAEMIA OF MALIGNANCY
     Dosage: 4MG/5ML PER 21 DAYS
     Dates: start: 20100913
  2. ZOMETA [Suspect]
     Dosage: 4MG/5ML PER 21 DAYS
     Dates: start: 20101005
  3. ZOMETA [Suspect]
     Dosage: 4MG/5ML PER 21 DAYS
     Dates: start: 20101123, end: 20101123

REACTIONS (2)
  - SPINAL ANAESTHESIA [None]
  - TUMOUR PAIN [None]
